FAERS Safety Report 15253217 (Version 1)
Quarter: 2018Q3

REPORT INFORMATION
  Report Type: Spontaneous
  Country: US (occurrence: US)
  Receive Date: 20180807
  Receipt Date: 20180807
  Transmission Date: 20181010
  Serious: No
  Sender: FDA-Public Use
  Company Number: US-TEVA-2018-US-937875

PATIENT
  Sex: Female

DRUGS (1)
  1. ATENOLOL. [Suspect]
     Active Substance: ATENOLOL
     Route: 065

REACTIONS (4)
  - Diarrhoea [Unknown]
  - Adverse drug reaction [Unknown]
  - Nausea [Unknown]
  - Malaise [Unknown]
